FAERS Safety Report 10721039 (Version 1)
Quarter: 2015Q1

REPORT INFORMATION
  Report Type: Spontaneous
  Country: US (occurrence: US)
  Receive Date: 20150119
  Receipt Date: 20150119
  Transmission Date: 20150721
  Serious: No
  Sender: FDA-Public Use
  Company Number: US-UNITED THERAPEUTICS-UNT-2014-008060

PATIENT
  Age: 48 Year
  Sex: Male
  Weight: 163.26 kg

DRUGS (3)
  1. TRACLEER [Concomitant]
     Active Substance: BOSENTAN\BOSENTAN MONOHYDRATE
     Indication: PRODUCT USED FOR UNKNOWN INDICATION
  2. ADEMPAS [Concomitant]
     Active Substance: RIOCIGUAT
     Indication: PRODUCT USED FOR UNKNOWN INDICATION
  3. REMODULIN [Suspect]
     Active Substance: TREPROSTINIL
     Indication: COR PULMONALE CHRONIC
     Dosage: 0.01 ?G/KG/MIN, CONTINUING
     Route: 041
     Dates: start: 20140919

REACTIONS (7)
  - Injection site erythema [Unknown]
  - Diarrhoea [Unknown]
  - Dermatitis contact [Unknown]
  - Rash pruritic [Unknown]
  - Insomnia [Unknown]
  - Gastrooesophageal reflux disease [Unknown]
  - Urticaria [Unknown]

NARRATIVE: CASE EVENT DATE: 201409
